FAERS Safety Report 5019589-7 (Version None)
Quarter: 2006Q2

REPORT INFORMATION
  Report Type: 
  Country: None (occurrence: None)
  Receive Date: 20060606
  Receipt Date: 20060526
  Transmission Date: 20061013
  Serious: Yes (Other)
  Sender: FDA-Public Use
  Company Number: CA-MERCK-0605CAN00163

PATIENT
  Age: 53 Year
  Sex: Male

DRUGS (3)
  1. INDOCIN [Suspect]
     Indication: ARTHRALGIA
     Route: 054
  2. TENOFOVIR DISOPROXIL FUMARATE [Suspect]
     Indication: ACUTE HIV INFECTION
     Route: 065
  3. [THERAPY UNSPECIFIED] [Concomitant]
     Route: 065

REACTIONS (4)
  - RECTAL HAEMORRHAGE [None]
  - RENAL FAILURE ACUTE [None]
  - RENAL TUBULAR NECROSIS [None]
  - VOMITING [None]
